FAERS Safety Report 21380125 (Version 1)
Quarter: 2022Q3

REPORT INFORMATION
  Report Type: Spontaneous
  Country: US (occurrence: US)
  Receive Date: 20220927
  Receipt Date: 20220927
  Transmission Date: 20221027
  Serious: Yes (Hospitalization, Other)
  Sender: FDA-Public Use
  Company Number: US-JNJFOC-20220942080

PATIENT
  Age: 76 Year
  Sex: Female

DRUGS (5)
  1. XARELTO [Suspect]
     Active Substance: RIVAROXABAN
     Indication: Atrial fibrillation
     Route: 048
     Dates: start: 202205
  2. XARELTO [Suspect]
     Active Substance: RIVAROXABAN
     Indication: Cerebrovascular accident prophylaxis
  3. OFEV [Concomitant]
     Active Substance: NINTEDANIB
     Indication: Idiopathic pulmonary fibrosis
     Route: 048
     Dates: start: 20220213, end: 20220321
  4. OFEV [Concomitant]
     Active Substance: NINTEDANIB
     Route: 048
  5. LASIX [Concomitant]
     Active Substance: FUROSEMIDE

REACTIONS (20)
  - Pneumonia [Unknown]
  - Pathogen resistance [Unknown]
  - Suicidal ideation [Unknown]
  - Presyncope [Unknown]
  - Weight decreased [Recovered/Resolved]
  - Depression [Not Recovered/Not Resolved]
  - Disturbance in attention [Unknown]
  - Influenza [Recovered/Resolved]
  - Hepatic enzyme increased [Recovered/Resolved]
  - Nausea [Recovered/Resolved]
  - Hypotension [Recovered/Resolved]
  - Haematochezia [Unknown]
  - Dizziness [Recovered/Resolved]
  - Fatigue [Not Recovered/Not Resolved]
  - Tremor [Not Recovered/Not Resolved]
  - Ear pain [Not Recovered/Not Resolved]
  - Urinary tract infection [Not Recovered/Not Resolved]
  - Dyspnoea exertional [Not Recovered/Not Resolved]
  - Decreased appetite [Not Recovered/Not Resolved]
  - Chromaturia [Not Recovered/Not Resolved]
